FAERS Safety Report 8277956-2 (Version None)
Quarter: 2012Q2

REPORT INFORMATION
  Report Type: 
  Country: None (occurrence: None)
  Receive Date: 20120412
  Receipt Date: 20120402
  Transmission Date: 20120825
  Serious: Yes (Other)
  Sender: FDA-Public Use
  Company Number: CA-PFIZER INC-2011218057

PATIENT
  Age: 53 Year
  Sex: Male

DRUGS (4)
  1. METHADONE HCL [Suspect]
     Dosage: UNK
  2. AMIODARONE HCL [Suspect]
     Indication: VENTRICULAR ARRHYTHMIA
     Dosage: UNK
  3. CITALOPRAM [Suspect]
     Dosage: UNK
  4. HYDROCHLOROTHIAZIDE [Suspect]
     Dosage: UNK

REACTIONS (6)
  - ELECTROCARDIOGRAM QT PROLONGED [None]
  - HYPOMAGNESAEMIA [None]
  - TORSADE DE POINTES [None]
  - ELECTROLYTE IMBALANCE [None]
  - VENTRICULAR ARRHYTHMIA [None]
  - HYPOKALAEMIA [None]
